FAERS Safety Report 6219127-7 (Version None)
Quarter: 2009Q2

REPORT INFORMATION
  Report Type: 
  Country: None (occurrence: None)
  Receive Date: 20090605
  Receipt Date: 20090605
  Transmission Date: 20091009
  Serious: Yes (Hospitalization)
  Sender: FDA-Public Use
  Company Number: None

PATIENT
  Sex: Male
  Weight: 106 kg

DRUGS (6)
  1. CYTARABINE [Suspect]
     Dosage: 70 MG
  2. DAUNORUBICIN HCL [Suspect]
     Dosage: 199 MG
  3. METHOTREXATE [Suspect]
     Dosage: 15 MG
  4. PEG-L ASPARAGINASE (K-H) [Suspect]
     Dosage: 5750 IU
  5. PREDNISONE TAB [Suspect]
     Dosage: 3780 MG
  6. VINCRISTINE SULFATE [Suspect]
     Dosage: 8 MG

REACTIONS (8)
  - ASCITES [None]
  - COAGULOPATHY [None]
  - CONDITION AGGRAVATED [None]
  - ENCEPHALOPATHY [None]
  - FUNGAL INFECTION [None]
  - HEPATIC CIRRHOSIS [None]
  - HEPATIC FAILURE [None]
  - PALATAL DISORDER [None]
